FAERS Safety Report 25237663 (Version 1)
Quarter: 2025Q2

REPORT INFORMATION
  Report Type: Spontaneous
  Country: US (occurrence: US)
  Receive Date: 20250425
  Receipt Date: 20250425
  Transmission Date: 20250717
  Serious: No
  Sender: UROGEN PHARMA
  Company Number: US-UROGEN PHARMA LTD.-2025-UGN-000030

PATIENT

DRUGS (10)
  1. JELMYTO [Suspect]
     Active Substance: MITOMYCIN
     Indication: Transitional cell cancer of the renal pelvis and ureter
     Dosage: 60 MILLILITER, ONCE A WEEK (INSTILLATION), LEFT KIDNEY
     Dates: start: 20240603, end: 20240603
  2. JELMYTO [Suspect]
     Active Substance: MITOMYCIN
     Dosage: UNK, ONCE A WEEK (INSTILLATION), LEFT KIDNEY
     Dates: start: 20240610, end: 20240610
  3. JELMYTO [Suspect]
     Active Substance: MITOMYCIN
     Dosage: UNK, ONCE A WEEK (INSTILLATION), LEFT KIDNEY
     Dates: start: 20240701, end: 20240701
  4. JELMYTO [Suspect]
     Active Substance: MITOMYCIN
     Dosage: UNK, ONCE A WEEK (INSTILLATION), LEFT KIDNEY
     Dates: start: 20240708, end: 20240708
  5. JELMYTO [Suspect]
     Active Substance: MITOMYCIN
     Dosage: UNK, ONCE A WEEK (INSTILLATION), LEFT KIDNEY
     Dates: start: 20240715, end: 20240715
  6. JELMYTO [Suspect]
     Active Substance: MITOMYCIN
     Dosage: UNK, ONCE A WEEK (INSTILLATION), LEFT KIDNEY
     Dates: start: 20240722, end: 20240722
  7. JELMYTO [Suspect]
     Active Substance: MITOMYCIN
     Dosage: UNK, ONCE A MONTH, (INSTILLATION), LEFT KIDNEY
     Dates: start: 20241014, end: 20241014
  8. JELMYTO [Suspect]
     Active Substance: MITOMYCIN
     Dosage: UNK, ONCE A MONTH, (INSTILLATION), LEFT KIDNEY
     Dates: start: 20241111, end: 20241111
  9. JELMYTO [Suspect]
     Active Substance: MITOMYCIN
     Dosage: UNK, ONCE A MONTH, (INSTILLATION), LEFT KIDNEY
     Dates: start: 20250127, end: 20250127
  10. JELMYTO [Suspect]
     Active Substance: MITOMYCIN
     Dosage: UNK, ONCE A MONTH, (INSTILLATION), LEFT KIDNEY
     Dates: start: 20250303, end: 20250303

REACTIONS (1)
  - Anaesthetic complication [Unknown]

NARRATIVE: CASE EVENT DATE: 20250304
